FAERS Safety Report 16301192 (Version 3)
Quarter: 2019Q2

REPORT INFORMATION
  Report Type: Report from Study
  Country: US (occurrence: US)
  Receive Date: 20190510
  Receipt Date: 20190618
  Transmission Date: 20190711
  Serious: Yes (Death, Hospitalization, Other)
  Sender: FDA-Public Use
  Company Number: US-ACTELION-A-NJ2017-159250

PATIENT
  Age: 46 Year
  Sex: Female
  Weight: 54.42 kg

DRUGS (3)
  1. OPSUMIT [Suspect]
     Active Substance: MACITENTAN
     Indication: PULMONARY ARTERIAL HYPERTENSION
     Dosage: 10 MG, QD
     Route: 048
     Dates: start: 20170622, end: 20190313
  2. LACTULOSE. [Concomitant]
     Active Substance: LACTULOSE
     Dosage: 10 G, QD
  3. LORAZEPAM. [Concomitant]
     Active Substance: LORAZEPAM
     Dosage: 0.5 MG, QPM

REACTIONS (28)
  - Body mass index decreased [Fatal]
  - Sepsis [Unknown]
  - Infection [Not Recovered/Not Resolved]
  - Arthralgia [Unknown]
  - Musculoskeletal disorder [Unknown]
  - Lymphopenia [Fatal]
  - Pyrexia [Unknown]
  - Blood alkaline phosphatase increased [Unknown]
  - Pain [Unknown]
  - Streptococcal bacteraemia [Not Recovered/Not Resolved]
  - Aspartate aminotransferase increased [Unknown]
  - Depression [Fatal]
  - Septic shock [Recovered/Resolved with Sequelae]
  - Pneumonia pneumococcal [Recovered/Resolved with Sequelae]
  - Malnutrition [Fatal]
  - Hepatic encephalopathy [Not Recovered/Not Resolved]
  - Staphylococcal infection [Unknown]
  - Arthritis [Unknown]
  - Rheumatoid arthritis [Unknown]
  - Blood albumin decreased [Fatal]
  - Arthritis bacterial [Recovered/Resolved with Sequelae]
  - Hepatic cirrhosis [Unknown]
  - Band neutrophil count increased [Unknown]
  - Chills [Unknown]
  - Dysuria [Unknown]
  - Confusional state [Unknown]
  - Asterixis [Unknown]
  - Ammonia increased [Unknown]

NARRATIVE: CASE EVENT DATE: 20170831
